FAERS Safety Report 4690642-0 (Version None)
Quarter: 2005Q2

REPORT INFORMATION
  Report Type: 
  Country: None (occurrence: None)
  Receive Date: 20050615
  Receipt Date: 20050613
  Transmission Date: 20051028
  Serious: Yes (Other)
  Sender: FDA-Public Use
  Company Number: US-GLAXOSMITHKLINE-A0562426A

PATIENT
  Age: 45 Year
  Sex: Female

DRUGS (5)
  1. LITHIUM CARBONATE [Suspect]
  2. LAMICTAL [Suspect]
     Indication: BIPOLAR DISORDER
     Route: 048
     Dates: start: 20030801
  3. PROZAC [Concomitant]
  4. PREDNISONE [Concomitant]
     Indication: MULTIPLE SCLEROSIS
  5. REMERON [Concomitant]

REACTIONS (1)
  - HAEMOLYTIC ANAEMIA [None]
